FAERS Safety Report 7538308-3 (Version None)
Quarter: 2011Q2

REPORT INFORMATION
  Report Type: 
  Country: None (occurrence: None)
  Receive Date: 20110609
  Receipt Date: 20070315
  Transmission Date: 20111010
  Serious: Yes (Hospitalization)
  Sender: FDA-Public Use
  Company Number: PHEH2007US03135

PATIENT
  Sex: Male

DRUGS (15)
  1. LANTUS [Concomitant]
     Dates: start: 20060810
  2. LASIX [Concomitant]
     Dates: start: 20060405
  3. LOPRESSOR [Suspect]
     Dates: start: 20061102
  4. INSULIN [Concomitant]
     Dates: start: 20060713
  5. LIPITOR [Concomitant]
     Dates: start: 20060201
  6. BACTRIM [Concomitant]
     Dates: start: 20060201
  7. IMMUNOSUPPRESSIVE AGENTS [Suspect]
     Indication: RENAL TRANSPLANT
     Dates: start: 20060125
  8. PREDNISONE [Concomitant]
     Dates: start: 20060406
  9. SENSIPAR [Concomitant]
     Dates: start: 20060127
  10. CLEOCIN HYDROCHLORIDE [Concomitant]
     Dates: start: 20060220
  11. FLONASE [Concomitant]
     Dates: start: 20060518
  12. VALCYTE [Concomitant]
     Dates: start: 20060710
  13. CELLCEPT [Concomitant]
     Dates: start: 20060619
  14. NEXIUM [Concomitant]
     Dates: start: 20060209
  15. FLOMAX [Concomitant]
     Dates: start: 20060209

REACTIONS (2)
  - CYTOMEGALOVIRUS TEST POSITIVE [None]
  - CYTOMEGALOVIRUS INFECTION [None]
